FAERS Safety Report 8493944-5 (Version None)
Quarter: 2012Q3

REPORT INFORMATION
  Report Type: 
  Country: None (occurrence: None)
  Receive Date: 20120709
  Receipt Date: 20120618
  Transmission Date: 20120928
  Serious: No
  Sender: FDA-Public Use
  Company Number: US-ASTRAZENECA-2011SE41510

PATIENT
  Age: 56 Year
  Sex: Female

DRUGS (26)
  1. LORCET-HD [Concomitant]
     Dosage: 10/650 2 TO 3 TIMES A DAY
     Dates: start: 20080119
  2. LORCET-HD [Concomitant]
     Dosage: 10/650 MG EVERY DAY BY MOUTH
     Route: 048
     Dates: start: 20120515
  3. TAGAMET [Concomitant]
  4. LORCET-HD [Concomitant]
     Dosage: 10/650 MG EVERY DAY BY MOUTH
     Route: 048
     Dates: start: 20120515
  5. NEXIUM [Suspect]
     Route: 048
     Dates: start: 20080119
  6. LORCET-HD [Concomitant]
     Indication: ARTHRITIS
  7. METOPROLOL TARTRATE [Concomitant]
     Route: 048
     Dates: start: 20120515
  8. PHEGAN WITH CODINE [Concomitant]
     Indication: NAUSEA
     Dosage: 4 TABLET
     Dates: start: 20080119
  9. NEXIUM [Suspect]
     Route: 048
     Dates: start: 20120515
  10. ZANTAC [Concomitant]
  11. LORCET-HD [Concomitant]
     Indication: OSTEOPOROSIS
  12. SOMA [Concomitant]
     Route: 048
     Dates: start: 20080119
  13. DUONAB [Concomitant]
     Indication: ASTHMA
     Dosage: 4 VALES A DRUG
     Dates: start: 20080119
  14. NEXIUM [Suspect]
     Route: 048
  15. SOMA [Concomitant]
     Indication: MUSCLE SPASMS
  16. HYDROCODONE BITARTRATE + ACETAMINOPHEN [Concomitant]
     Route: 048
     Dates: start: 20120515
  17. NEXIUM [Suspect]
     Indication: GASTROOESOPHAGEAL REFLUX DISEASE
     Route: 048
     Dates: start: 20030101
  18. PRILOSEC [Concomitant]
  19. LORCET-HD [Concomitant]
     Indication: PAIN
  20. LORCET-HD [Concomitant]
     Dosage: 10/650 2 TO 3 TIMES A DAY
     Dates: start: 20080119
  21. DUONAB [Concomitant]
     Indication: DYSPNOEA
     Dosage: 4 VALES A DRUG
     Dates: start: 20080119
  22. LORCET-HD [Concomitant]
     Dosage: 10/650 MG EVERY DAY BY MOUTH
     Route: 048
     Dates: start: 20120515
  23. SOMA [Concomitant]
     Dates: start: 20080119
  24. PREVACID [Concomitant]
  25. LORCET-HD [Concomitant]
     Dosage: 10/650 2 TO 3 TIMES A DAY
     Dates: start: 20080119
  26. METOPROLOL TARTRATE [Concomitant]
     Indication: HYPERTENSION

REACTIONS (5)
  - OSTEOPOROSIS [None]
  - PAIN [None]
  - DEPRESSION [None]
  - EMOTIONAL DISTRESS [None]
  - MULTIPLE FRACTURES [None]
